FAERS Safety Report 9338303 (Version 1)
Quarter: 2013Q2

REPORT INFORMATION
  Report Type: Spontaneous
  Country: US (occurrence: US)
  Receive Date: 20130610
  Receipt Date: 20130610
  Transmission Date: 20140414
  Serious: Yes (Other)
  Sender: FDA-Public Use
  Company Number: US-AMGEN-USASP2013040098

PATIENT
  Age: 6 Year
  Sex: Female

DRUGS (5)
  1. ENBREL [Suspect]
     Indication: PRODUCT USED FOR UNKNOWN INDICATION
     Dosage: 25 MG, QWK
     Route: 058
     Dates: start: 201007
  2. XOPENEX [Concomitant]
     Dosage: 1.25/3ML, NEB
  3. PULMICORT [Concomitant]
     Dosage: 180 MUG, UNK
  4. PROTONIX [Concomitant]
     Dosage: 20 MG, UNK
  5. MIRALAX                            /00754501/ [Concomitant]
     Dosage: 3350 NF, POW

REACTIONS (1)
  - Pharyngitis streptococcal [Recovering/Resolving]
